FAERS Safety Report 12789626 (Version 1)
Quarter: 2016Q3

REPORT INFORMATION
  Report Type: Report from Study
  Country: DE (occurrence: DE)
  Receive Date: 20160928
  Receipt Date: 20160928
  Transmission Date: 20161109
  Serious: Yes (Other)
  Sender: FDA-Public Use
  Company Number: DE-ABBVIE-16K-062-1666793-00

PATIENT
  Sex: Female

DRUGS (7)
  1. HUMIRA [Suspect]
     Active Substance: ADALIMUMAB
     Indication: RHEUMATOID ARTHRITIS
     Route: 058
     Dates: start: 20150427
  2. SIMVAHEXAL [Concomitant]
     Active Substance: SIMVASTATIN
     Indication: PRODUCT USED FOR UNKNOWN INDICATION
  3. CLOPIDOGREL [Concomitant]
     Active Substance: CLOPIDOGREL BISULFATE
     Indication: PRODUCT USED FOR UNKNOWN INDICATION
  4. NEBIVOLOL. [Concomitant]
     Active Substance: NEBIVOLOL
     Indication: PRODUCT USED FOR UNKNOWN INDICATION
  5. PANTOPRAZOLE [Concomitant]
     Active Substance: PANTOPRAZOLE SODIUM
     Indication: PRODUCT USED FOR UNKNOWN INDICATION
  6. CEFUROX [Suspect]
     Active Substance: CEFUROXIME AXETIL
     Indication: CYSTITIS
     Route: 065
  7. VALSARTAN ACTAVIS [Concomitant]
     Active Substance: VALSARTAN
     Indication: PRODUCT USED FOR UNKNOWN INDICATION
     Dosage: 80/12.5 MG

REACTIONS (12)
  - Blood uric acid increased [Recovering/Resolving]
  - Cystitis [Recovering/Resolving]
  - Abdominal pain [Recovering/Resolving]
  - Renal impairment [Not Recovered/Not Resolved]
  - Abdominal discomfort [Recovering/Resolving]
  - Poor peripheral circulation [Recovering/Resolving]
  - Nausea [Recovering/Resolving]
  - Pyelonephritis [Recovering/Resolving]
  - Renal artery stenosis [Not Recovered/Not Resolved]
  - Kidney small [Not Recovered/Not Resolved]
  - Drug intolerance [Unknown]
  - Pain [Recovering/Resolving]

NARRATIVE: CASE EVENT DATE: 2016
